FAERS Safety Report 7939682-6 (Version None)
Quarter: 2011Q4

REPORT INFORMATION
  Report Type: 
  Country: None (occurrence: None)
  Receive Date: 20111125
  Receipt Date: 20111115
  Transmission Date: 20120403
  Serious: Yes (Hospitalization)
  Sender: FDA-Public Use
  Company Number: PHHY2011JP91969

PATIENT
  Age: 87 Year
  Sex: Female

DRUGS (9)
  1. TIENAM [Concomitant]
     Route: 030
  2. ISOSORBIDE DINITRATE [Concomitant]
  3. LAMISIL [Concomitant]
  4. RIVASTIGMINE [Suspect]
     Indication: DEMENTIA ALZHEIMER'S TYPE
     Dosage: 4.5 MG, DAILY
     Route: 062
     Dates: start: 20110816, end: 20110912
  5. RIVASTIGMINE [Suspect]
     Dosage: 9 MG, DAILY
     Route: 062
     Dates: start: 20110913, end: 20111010
  6. ALDACTONE [Concomitant]
  7. RISPERDAL [Concomitant]
  8. RIVASTIGMINE [Suspect]
     Dosage: 13.5 MG, DAILY
     Route: 062
     Dates: start: 20111011, end: 20111027
  9. LYRICA [Concomitant]

REACTIONS (4)
  - APPLICATION SITE ERYTHEMA [None]
  - BLISTER [None]
  - APPLICATION SITE DISCOLOURATION [None]
  - DRUG ADMINISTERED AT INAPPROPRIATE SITE [None]
